FAERS Safety Report 6003925-9 (Version None)
Quarter: 2008Q4

REPORT INFORMATION
  Report Type: 
  Country: None (occurrence: None)
  Receive Date: 20081216
  Receipt Date: 20081204
  Transmission Date: 20090506
  Serious: Yes (Hospitalization)
  Sender: FDA-Public Use
  Company Number: US-PFIZER INC-2008019271

PATIENT
  Sex: Female
  Weight: 66 kg

DRUGS (7)
  1. INHALED HUMAN INSULIN [Suspect]
     Indication: DIABETES MELLITUS
     Dosage: 16 MG, 1X/DAY
     Dates: start: 20020101
  2. CEFDINIR [Suspect]
     Route: 048
     Dates: start: 20080221, end: 20080228
  3. FACTIVE [Suspect]
     Indication: CLOSTRIDIUM DIFFICILE COLITIS
     Route: 048
     Dates: start: 20080218, end: 20080220
  4. SYNTHROID [Concomitant]
     Indication: HYPOTHYROIDISM
     Dosage: 0.112 MG, 1X/DAY
     Route: 048
     Dates: start: 19951001
  5. ZOCOR [Concomitant]
     Indication: HYPERLIPIDAEMIA
     Dosage: 20 MG, 1X/DAY
     Route: 048
     Dates: start: 19980101
  6. LEXAPRO [Concomitant]
     Indication: DEPRESSION
     Dosage: 5 MG, 1X/DAY
     Route: 048
     Dates: start: 20061020
  7. IBUPROFEN [Concomitant]
     Indication: ARTHRALGIA
     Dosage: 400 MG, 1X/DAY
     Route: 048
     Dates: start: 20030301

REACTIONS (2)
  - CLOSTRIDIUM DIFFICILE COLITIS [None]
  - DEHYDRATION [None]
